FAERS Safety Report 6326196-2 (Version None)
Quarter: 2009Q3

REPORT INFORMATION
  Report Type: 
  Country: None (occurrence: None)
  Receive Date: 20090824
  Receipt Date: 20090814
  Transmission Date: 20100115
  Serious: Yes (Hospitalization, Other)
  Sender: FDA-Public Use
  Company Number: BR-ABBOTT-08P-020-0445003-00

PATIENT
  Sex: Female
  Weight: 62 kg

DRUGS (20)
  1. HUMIRA [Suspect]
     Indication: RHEUMATOID ARTHRITIS
     Route: 058
     Dates: start: 20071201
  2. HUMIRA [Suspect]
     Route: 058
  3. DEFLAZACORT [Concomitant]
     Indication: RHEUMATOID ARTHRITIS
     Route: 048
  4. DEFLAZACORT [Concomitant]
     Indication: ANTIINFLAMMATORY THERAPY
  5. OSCAL D [Concomitant]
     Indication: RHEUMATOID ARTHRITIS
     Route: 048
  6. ALENDRONATE SODIUM [Concomitant]
     Indication: RHEUMATOID ARTHRITIS
     Route: 048
  7. NAPROXEN [Concomitant]
     Indication: ANTIINFLAMMATORY THERAPY
     Route: 048
  8. LOSARTAN POTASSIUM AND HYDROCHLOROTHIAZIDE [Concomitant]
     Indication: HYPERTENSION
     Dosage: 100MG + 25 MG
     Route: 048
  9. AMLODIPINE BESILATE [Concomitant]
     Indication: HYPERTENSION
     Route: 048
  10. FLUOXETINE HYDROCHLORIDE [Concomitant]
     Indication: MENTAL DISORDER
     Route: 048
  11. CLONAZEPAM [Concomitant]
     Indication: SLEEP DISORDER THERAPY
     Dosage: 0.5 MG OR 0.25 MG
     Route: 048
  12. RISPERIDONE [Concomitant]
     Indication: MENTAL DISORDER
     Route: 048
  13. OMEPRAZOLE [Concomitant]
     Indication: PROPHYLAXIS AGAINST GASTROINTESTINAL ULCER
     Route: 048
  14. SERUM + UNKNOWN MEDICATIONS [Concomitant]
     Indication: DRUG USE FOR UNKNOWN INDICATION
  15. CITALOPRAM [Concomitant]
     Indication: MEMORY IMPAIRMENT
     Route: 048
     Dates: start: 20090401
  16. ZOLPIDEM [Concomitant]
     Indication: DRUG USE FOR UNKNOWN INDICATION
  17. DULOXETINE HYDROCHLORIDE [Concomitant]
     Indication: MEMORY IMPAIRMENT
     Route: 048
  18. TIMOLOL MALEATE [Concomitant]
     Indication: EYE DISORDER
     Route: 047
  19. LOSARTAN POTASSIUM AND HYDROCHLOROTHIAZIDE [Concomitant]
     Indication: BLOOD PRESSURE MANAGEMENT
     Route: 048
     Dates: start: 20070101
  20. CALCIUM CITRATE W/COLECALCIFEROL [Concomitant]
     Indication: BONE DISORDER
     Route: 048

REACTIONS (20)
  - ARTHRALGIA [None]
  - CEREBROVASCULAR ACCIDENT [None]
  - FALL [None]
  - FEMUR FRACTURE [None]
  - HAEMORRHAGE [None]
  - HALLUCINATION [None]
  - ILL-DEFINED DISORDER [None]
  - LABYRINTHITIS [None]
  - MEMORY IMPAIRMENT [None]
  - MOBILITY DECREASED [None]
  - NEPHROLITHIASIS [None]
  - OEDEMA PERIPHERAL [None]
  - PAIN [None]
  - PULMONARY OEDEMA [None]
  - SUICIDAL IDEATION [None]
  - SURGERY [None]
  - THROMBOSIS [None]
  - TUBERCULOSIS [None]
  - URINARY INCONTINENCE [None]
  - VISUAL IMPAIRMENT [None]
